FAERS Safety Report 21910188 (Version 1)
Quarter: 2023Q1

REPORT INFORMATION
  Report Type: Spontaneous
  Country: US (occurrence: US)
  Receive Date: 20230125
  Receipt Date: 20230125
  Transmission Date: 20230418
  Serious: No
  Sender: FDA-Public Use
  Company Number: US-ALLERGAN-2203499US

PATIENT
  Sex: Female
  Weight: 63.039 kg

DRUGS (12)
  1. BOTOX [Suspect]
     Active Substance: ONABOTULINUMTOXINA
     Indication: Skin wrinkling
     Dosage: UNK UNK, SINGLE
     Dates: start: 20220125, end: 20220125
  2. BOTOX [Suspect]
     Active Substance: ONABOTULINUMTOXINA
     Indication: Skin wrinkling
     Dosage: UNK UNK, SINGLE
     Dates: start: 20220125, end: 20220125
  3. BOTOX [Suspect]
     Active Substance: ONABOTULINUMTOXINA
     Indication: Skin wrinkling
     Dosage: UNK UNK, SINGLE
     Dates: start: 20220125, end: 20220125
  4. JUVEDERM ULTRA [Suspect]
     Active Substance: HYALURONIC ACID
     Indication: Skin wrinkling
  5. MONTELUKAST [Concomitant]
     Active Substance: MONTELUKAST SODIUM
  6. BUPROPION HYDROCHLORIDE [Concomitant]
     Active Substance: BUPROPION HYDROCHLORIDE
  7. PROGESTERONE [Concomitant]
     Active Substance: PROGESTERONE
  8. FLUCONAZOLE [Concomitant]
     Active Substance: FLUCONAZOLE
  9. UNSPECIFIED INGREDIENT [Concomitant]
     Active Substance: UNSPECIFIED INGREDIENT
  10. Clairton [Concomitant]
  11. SOOLANTRA [Concomitant]
     Active Substance: IVERMECTIN
     Indication: Rosacea
  12. ZILXI [Concomitant]
     Active Substance: MINOCYCLINE HYDROCHLORIDE
     Indication: Rosacea

REACTIONS (2)
  - Flushing [Not Recovered/Not Resolved]
  - Rash erythematous [Not Recovered/Not Resolved]

NARRATIVE: CASE EVENT DATE: 20220125
